FAERS Safety Report 7305141-7 (Version None)
Quarter: 2011Q1

REPORT INFORMATION
  Report Type: 
  Country: None (occurrence: None)
  Receive Date: 20110222
  Receipt Date: 20110214
  Transmission Date: 20110831
  Serious: Yes (Death)
  Sender: FDA-Public Use
  Company Number: US-AMGEN-USASP2011008838

PATIENT
  Age: 90 Year
  Sex: Female
  Weight: 52.15 kg

DRUGS (8)
  1. AMLODIPINE [Concomitant]
  2. LISINOPRIL [Concomitant]
  3. SEROQUEL [Concomitant]
     Indication: DEMENTIA
  4. PROCRIT [Suspect]
     Indication: ANAEMIA
     Dosage: 40000 IU, UNK
     Route: 058
     Dates: start: 20100308, end: 20100101
  5. SYNTHROID [Concomitant]
     Indication: THYROID DISORDER
  6. FLOXITINE [Concomitant]
     Indication: DEMENTIA
  7. ARICEPT                            /01318901/ [Concomitant]
     Indication: DEMENTIA
  8. FOSAMAX [Concomitant]

REACTIONS (1)
  - DEATH [None]
